FAERS Safety Report 24280828 (Version 1)
Quarter: 2024Q3

REPORT INFORMATION
  Report Type: Spontaneous
  Country: US (occurrence: US)
  Receive Date: 20240904
  Receipt Date: 20240904
  Transmission Date: 20241017
  Serious: No
  Sender: BOEHRINGER INGELHEIM
  Company Number: US-Komodo Health-a23aa000002wwaLAAQ

PATIENT
  Age: 73 Year
  Sex: Male

DRUGS (2)
  1. JARDIANCE [Suspect]
     Active Substance: EMPAGLIFLOZIN
     Indication: Diabetes mellitus
     Dosage: DAILY DOSE: 25 MILLIGRAM(S)
     Dates: start: 2022
  2. METFORMIN [Concomitant]
     Active Substance: METFORMIN HYDROCHLORIDE
     Indication: Product used for unknown indication

REACTIONS (2)
  - Fungal infection [Recovered/Resolved]
  - Artificial urinary sphincter implant [Recovered/Resolved]

NARRATIVE: CASE EVENT DATE: 20240101
